FAERS Safety Report 6841216-4 (Version None)
Quarter: 2010Q3

REPORT INFORMATION
  Report Type: 
  Country: None (occurrence: None)
  Receive Date: 20100714
  Receipt Date: 20070630
  Transmission Date: 20110219
  Serious: Yes (Other)
  Sender: FDA-Public Use
  Company Number: US-PFIZER INC-2007054981

PATIENT
  Sex: Female
  Weight: 55.3 kg

DRUGS (2)
  1. CHANTIX [Suspect]
     Indication: SMOKING CESSATION THERAPY
     Route: 048
     Dates: start: 20070521, end: 20070601
  2. SYNTHROID [Concomitant]

REACTIONS (4)
  - ABDOMINAL DISTENSION [None]
  - MYOCARDIAL INFARCTION [None]
  - RENAL PAIN [None]
  - SENSATION OF HEAVINESS [None]
